FAERS Safety Report 10413002 (Version 2)
Quarter: 2014Q3

REPORT INFORMATION
  Report Type: Spontaneous
  Country: US (occurrence: US)
  Receive Date: 20140827
  Receipt Date: 20140827
  Transmission Date: 20150326
  Serious: Yes (Hospitalization, Other)
  Sender: FDA-Public Use
  Company Number: US-009507513-2010SP059078

PATIENT
  Sex: Female
  Weight: 79.38 kg

DRUGS (1)
  1. NUVARING [Suspect]
     Active Substance: ETHINYL ESTRADIOL\ETONOGESTREL
     Indication: MENSTRUAL CYCLE MANAGEMENT
     Dates: start: 20080413, end: 20081116

REACTIONS (8)
  - Muscle spasms [Unknown]
  - Oropharyngeal pain [Unknown]
  - Pulmonary hypertension [Recovered/Resolved]
  - Deep vein thrombosis [Unknown]
  - Bronchitis [Not Recovered/Not Resolved]
  - Pulmonary embolism [Unknown]
  - Off label use [Unknown]
  - Rhinorrhoea [Unknown]

NARRATIVE: CASE EVENT DATE: 200811
